FAERS Safety Report 8202307-9 (Version None)
Quarter: 2012Q1

REPORT INFORMATION
  Report Type: 
  Country: None (occurrence: None)
  Receive Date: 20120312
  Receipt Date: 20120306
  Transmission Date: 20120608
  Serious: Yes (Other)
  Sender: FDA-Public Use
  Company Number: PHBS2006JP15176

PATIENT
  Age: 59 Year
  Sex: Male

DRUGS (3)
  1. STEROIDS NOS [Concomitant]
  2. AREDIA [Suspect]
     Indication: MULTIPLE MYELOMA
     Route: 042
  3. ANTI-CANCER DRUG [Concomitant]

REACTIONS (3)
  - OSTEONECROSIS OF JAW [None]
  - PAIN IN JAW [None]
  - BONE DISORDER [None]
